FAERS Safety Report 16263948 (Version 1)
Quarter: 2019Q2

REPORT INFORMATION
  Report Type: Spontaneous
  Country: US (occurrence: US)
  Receive Date: 20190501
  Receipt Date: 20190501
  Transmission Date: 20190711
  Serious: Yes (Life-Threatening, Disabling)
  Sender: FDA-Public Use
  Company Number: None

PATIENT
  Age: 54 Year
  Sex: Male
  Weight: 83.25 kg

DRUGS (2)
  1. CLONAZEPAM .5 MGM GENERIC [Suspect]
     Active Substance: CLONAZEPAM
     Indication: INSOMNIA
     Route: 048
     Dates: start: 19970130, end: 20170928
  2. CLONAZEPAM .5 MGM GENERIC [Suspect]
     Active Substance: CLONAZEPAM
     Indication: ANXIETY
     Route: 048
     Dates: start: 19970130, end: 20170928

REACTIONS (8)
  - Ill-defined disorder [None]
  - Iatrogenic injury [None]
  - Drug ineffective [None]
  - Suicidal ideation [None]
  - Drug withdrawal syndrome [None]
  - Memory impairment [None]
  - Therapeutic product effect decreased [None]
  - Central nervous system injury [None]

NARRATIVE: CASE EVENT DATE: 20170928
